FAERS Safety Report 16551110 (Version 1)
Quarter: 2019Q3

REPORT INFORMATION
  Report Type: Spontaneous
  Country: US (occurrence: US)
  Receive Date: 20190709
  Receipt Date: 20190709
  Transmission Date: 20191004
  Serious: Yes (Disabling)
  Sender: FDA-Public Use
  Company Number: None

PATIENT
  Age: 29 Year
  Sex: Female
  Weight: 54 kg

DRUGS (1)
  1. GALCANEZUMAB-GNLM [Suspect]
     Active Substance: GALCANEZUMAB-GNLM
     Indication: MIGRAINE
     Dosage: ?          OTHER FREQUENCY:ONCE;?
     Route: 058
     Dates: start: 20190612

REACTIONS (5)
  - Drug ineffective [None]
  - Ear infection [None]
  - Ear pain [None]
  - Deafness unilateral [None]
  - Deafness neurosensory [None]

NARRATIVE: CASE EVENT DATE: 20190625
